FAERS Safety Report 6938517-8 (Version None)
Quarter: 2010Q3

REPORT INFORMATION
  Report Type: 
  Country: None (occurrence: None)
  Receive Date: 20100824
  Receipt Date: 20100816
  Transmission Date: 20110219
  Serious: Yes (Death, Hospitalization)
  Sender: FDA-Public Use
  Company Number: US-SANOFI-AVENTIS-2010SA048415

PATIENT
  Age: 76 Year
  Sex: Male

DRUGS (7)
  1. JEVTANA [Suspect]
     Indication: PROSTATE CANCER
     Dosage: RECEIVED ONCE
     Route: 041
     Dates: start: 20100721, end: 20100721
  2. SPIRONOLACTONE [Concomitant]
  3. FUROSEMIDE [Concomitant]
  4. LEVOTHYROXINE SODIUM [Concomitant]
     Dosage: DOSE:0.175 UNIT(S)
  5. ESOMEPRAZOLE MAGNESIUM [Concomitant]
     Dosage: EVERY MORNING
  6. HYDROCODONE BITARTRATE [Concomitant]
  7. METFORMIN HCL [Concomitant]
     Dosage: EVERY MORNING

REACTIONS (10)
  - FAILURE TO THRIVE [None]
  - FATIGUE [None]
  - FEBRILE NEUTROPENIA [None]
  - FLUID RETENTION [None]
  - HYPOTENSION [None]
  - INFECTION [None]
  - MENTAL STATUS CHANGES [None]
  - OEDEMA PERIPHERAL [None]
  - PANCYTOPENIA [None]
  - TACHYCARDIA [None]
